FAERS Safety Report 4962533-9 (Version None)
Quarter: 2006Q1

REPORT INFORMATION
  Report Type: 
  Country: None (occurrence: None)
  Receive Date: 20060201
  Receipt Date: 20051103
  Transmission Date: 20060701
  Serious: No
  Sender: FDA-Public Use
  Company Number: 2005PV004395

PATIENT
  Age: 52 Year
  Sex: Female
  Weight: 75.2971 kg

DRUGS (2)
  1. BYETTA [Suspect]
     Indication: DIABETES MELLITUS NON-INSULIN-DEPENDENT
     Dosage: 10 MCG; BID; SC
     Route: 058
     Dates: start: 20050901
  2. FORTAMET [Concomitant]

REACTIONS (1)
  - URINARY TRACT INFECTION [None]
